FAERS Safety Report 7380087-7 (Version None)
Quarter: 2011Q1

REPORT INFORMATION
  Report Type: 
  Country: None (occurrence: None)
  Receive Date: 20110329
  Receipt Date: 20100208
  Transmission Date: 20110831
  Serious: No
  Sender: FDA-Public Use
  Company Number: US-MYLANLABS-2010S1002199

PATIENT
  Age: 42 Year
  Sex: Female
  Weight: 74.84 kg

DRUGS (3)
  1. ATIVAN [Concomitant]
  2. NEXIUM [Concomitant]
  3. ESTRADIOL [Suspect]
     Indication: HORMONE REPLACEMENT THERAPY
     Dosage: Q24H
     Route: 062
     Dates: start: 20090514, end: 20100101

REACTIONS (1)
  - APPLICATION SITE ERYTHEMA [None]
